FAERS Safety Report 9410645 (Version 1)
Quarter: 2013Q3

REPORT INFORMATION
  Report Type: Spontaneous
  Country: None (occurrence: None)
  Receive Date: 20130710
  Receipt Date: 20130710
  Transmission Date: 20140515
  Serious: Yes (Other)
  Sender: FDA-Public Use
  Company Number: 09-AUR-09519

PATIENT
  Sex: Female

DRUGS (2)
  1. FLUOXETINE (FLUOXETINE) (FLUOXETINE) [Suspect]
     Indication: OBSESSIVE-COMPULSIVE DISORDER
     Dosage: 25MG, 1 D TRANSPLACENTAL
     Route: 064
  2. DIAZEPAM (DIAZEPAM) [Suspect]
     Indication: OBSESSIVE-COMPULSIVE DISORDER

REACTIONS (10)
  - Maternal drugs affecting foetus [None]
  - Agitation neonatal [None]
  - Hypertonia neonatal [None]
  - Oculogyric crisis [None]
  - Feeding disorder neonatal [None]
  - Vomiting neonatal [None]
  - Drug withdrawal syndrome neonatal [None]
  - Eye movement disorder [None]
  - Microcephaly [None]
  - Mental retardation [None]
